FAERS Safety Report 5231427-6 (Version None)
Quarter: 2007Q1

REPORT INFORMATION
  Report Type: 
  Country: None (occurrence: None)
  Receive Date: 20070206
  Receipt Date: 20070126
  Transmission Date: 20070707
  Serious: Yes (Hospitalization)
  Sender: FDA-Public Use
  Company Number: DE-SHR-DE-2007-002592

PATIENT
  Age: 52 Year
  Sex: Female

DRUGS (9)
  1. BETASERON [Suspect]
     Indication: RELAPSING-REMITTING MULTIPLE SCLEROSIS
     Dosage: UNK, EVERY 2D
     Route: 058
     Dates: start: 20041129, end: 20061127
  2. IUD NOS [Concomitant]
     Indication: CONTRACEPTION
  3. BISOPROLOL FUMARATE [Concomitant]
     Indication: HYPERTENSION
     Dosage: 2.5 MG/H, 1X/DAY
     Route: 048
     Dates: start: 20030301, end: 20040312
  4. BISOPROLOL FUMARATE [Concomitant]
     Dosage: 5 MG, 1X/DAY
     Route: 048
     Dates: start: 20031013, end: 20040314
  5. BISOPROLOL FUMARATE [Concomitant]
     Dosage: 2.5 MG, 1X/DAY
     Route: 048
     Dates: start: 20041215
  6. CITALOPRAM [Concomitant]
     Indication: DEPRESSION
     Dosage: 20 MG, 1X/DAY
     Route: 048
     Dates: start: 20060317
  7. IBUPROFEN [Concomitant]
     Dosage: 800 MG, EVERY 2D
     Route: 048
     Dates: start: 20041124, end: 20041228
  8. IBUPROFEN [Concomitant]
     Dosage: 400 MG, EVERY 2D
     Route: 048
     Dates: start: 20050307
  9. COPAXONE [Suspect]

REACTIONS (4)
  - HEPATIC ENZYME INCREASED [None]
  - HEPATIC FUNCTION ABNORMAL [None]
  - NAUSEA [None]
  - OCULAR ICTERUS [None]
